FAERS Safety Report 19480587 (Version 1)
Quarter: 2021Q3

REPORT INFORMATION
  Report Type: Spontaneous
  Country: ES (occurrence: ES)
  Receive Date: 20210701
  Receipt Date: 20210701
  Transmission Date: 20211014
  Serious: Yes (Other)
  Sender: FDA-Public Use
  Company Number: ES-TEVA-2021-ES-1927378

PATIENT
  Age: 64 Year
  Sex: Male
  Weight: 76.6 kg

DRUGS (2)
  1. RAMUCIRUMAB (9074A) [Suspect]
     Active Substance: RAMUCIRUMAB
     Indication: GASTRIC CANCER
     Dosage: 537.6 MG
     Dates: start: 20210413
  2. PACLITAXEL (2698A) [Suspect]
     Active Substance: PACLITAXEL
     Indication: GASTRIC CANCER
     Dosage: 143.2 MG
     Dates: start: 20210119

REACTIONS (1)
  - Deep vein thrombosis [Not Recovered/Not Resolved]

NARRATIVE: CASE EVENT DATE: 20210427
